FAERS Safety Report 11109120 (Version 1)
Quarter: 2015Q2

REPORT INFORMATION
  Report Type: Spontaneous
  Country: FR (occurrence: FR)
  Receive Date: 20150513
  Receipt Date: 20150513
  Transmission Date: 20150821
  Serious: Yes (Hospitalization)
  Sender: FDA-Public Use
  Company Number: FR-ASTRAZENECA-2015SE43095

PATIENT
  Age: 21185 Day
  Sex: Female

DRUGS (23)
  1. FLAGYL [Suspect]
     Active Substance: METRONIDAZOLE\METRONIDAZOLE HYDROCHLORIDE
     Indication: ARTHRITIS INFECTIVE
     Route: 048
     Dates: start: 20150306, end: 20150318
  2. FLAGYL [Suspect]
     Active Substance: METRONIDAZOLE\METRONIDAZOLE HYDROCHLORIDE
     Indication: ARTHRITIS INFECTIVE
     Route: 048
     Dates: start: 20150325, end: 20150326
  3. OROZAMUDOL [Suspect]
     Active Substance: TRAMADOL
     Indication: PAIN
     Route: 048
     Dates: start: 20150227, end: 20150305
  4. GENTAMICINE PANPHARMA [Suspect]
     Active Substance: GENTAMICIN
     Indication: ARTHRITIS INFECTIVE
     Route: 048
     Dates: start: 20150227, end: 20150302
  5. VANCOMYCINE MYLAN [Suspect]
     Active Substance: VANCOMYCIN
     Indication: ARTHRITIS INFECTIVE
     Route: 048
     Dates: start: 20150227, end: 20150301
  6. VANCOMYCINE MYLAN [Suspect]
     Active Substance: VANCOMYCIN
     Indication: ARTHRITIS INFECTIVE
     Route: 048
     Dates: start: 20150302, end: 20150318
  7. LYRICA [Suspect]
     Active Substance: PREGABALIN
     Indication: PAIN
     Route: 048
     Dates: start: 20150226, end: 20150304
  8. OXYNORM [Suspect]
     Active Substance: OXYCODONE HYDROCHLORIDE
     Indication: PAIN
     Route: 048
     Dates: start: 20150226, end: 20150306
  9. LOVENOX [Suspect]
     Active Substance: ENOXAPARIN SODIUM
     Indication: THROMBOSIS PROPHYLAXIS
     Dosage: 4000 UI DAILY
     Route: 058
     Dates: start: 20150227, end: 20150311
  10. SERESTA [Concomitant]
     Active Substance: OXAZEPAM
  11. THERALENE [Concomitant]
     Active Substance: TRIMEPRAZINE
  12. LYRICA [Suspect]
     Active Substance: PREGABALIN
     Indication: PAIN
     Route: 048
     Dates: start: 20150305, end: 20150306
  13. ZYPREXA [Concomitant]
     Active Substance: OLANZAPINE
  14. TAZOCILLINE [Suspect]
     Active Substance: PIPERACILLIN SODIUM\TAZOBACTAM SODIUM
     Indication: ARTHRITIS INFECTIVE
     Dosage: 4G/500MG, THREE TIMES A DAY
     Route: 042
     Dates: start: 20150227, end: 20150306
  15. OROZAMUDOL [Suspect]
     Active Substance: TRAMADOL
     Indication: PAIN
     Route: 048
     Dates: start: 20150305, end: 20150325
  16. TERCIAN [Concomitant]
     Active Substance: CYAMEMAZINE
  17. AMOXICILLINE [Suspect]
     Active Substance: AMOXICILLIN
     Indication: ARTHRITIS INFECTIVE
     Dosage: 1 G THREE TIMES A DAY, NON-AZ PRODUCT
     Route: 048
     Dates: start: 20150318, end: 20150325
  18. AUGMENTIN [Suspect]
     Active Substance: AMOXICILLIN\CLAVULANATE POTASSIUM
     Indication: ARTHRITIS INFECTIVE
     Dosage: AMOXICILLIN+CLAVULANIC ACID 1G/125MG, THREE TIMES A DAY
     Route: 048
     Dates: start: 20150318, end: 20150325
  19. FLOXYFRAL [Concomitant]
     Active Substance: FLUVOXAMINE
  20. INEXIUM [Suspect]
     Active Substance: ESOMEPRAZOLE
     Indication: PROPHYLAXIS AGAINST GASTROINTESTINAL ULCER
     Route: 048
     Dates: start: 20150207, end: 20150302
  21. TRAMADOL [Suspect]
     Active Substance: TRAMADOL
     Indication: PAIN
     Route: 048
     Dates: start: 20150306, end: 20150325
  22. TAHOR [Concomitant]
     Active Substance: ATORVASTATIN CALCIUM
  23. AVLOCARDYL [Concomitant]
     Active Substance: PROPRANOLOL HYDROCHLORIDE

REACTIONS (2)
  - Toxic skin eruption [Recovered/Resolved]
  - Epstein-Barr virus infection [Unknown]

NARRATIVE: CASE EVENT DATE: 20150322
